FAERS Safety Report 18053137 (Version 2)
Quarter: 2020Q3

REPORT INFORMATION
  Report Type: Spontaneous
  Country: CN (occurrence: CN)
  Receive Date: 20200722
  Receipt Date: 20200804
  Transmission Date: 20201103
  Serious: Yes (Other)
  Sender: FDA-Public Use
  Company Number: CN-SA-2020SA177067

PATIENT

DRUGS (11)
  1. BEVACIZUMAB. [Concomitant]
     Active Substance: BEVACIZUMAB
     Indication: RECTAL ADENOCARCINOMA
     Dosage: 300 MG, QOW; 300 MG(5 MG/KG)
     Route: 065
     Dates: start: 20171219
  2. FLUOROURACIL. [Suspect]
     Active Substance: FLUOROURACIL
     Indication: RECTAL ADENOCARCINOMA
     Dosage: 4 G, QOW; 4 G(2400 MG/M2)
     Route: 042
     Dates: start: 20171218
  3. FLUOROURACIL. [Suspect]
     Active Substance: FLUOROURACIL
     Indication: DIFFERENTIATION SYNDROME
     Dosage: 3.5 G, QOW
     Route: 065
     Dates: start: 20180513
  4. FLUOROURACIL. [Suspect]
     Active Substance: FLUOROURACIL
     Dosage: 3.5 G, QOW
     Route: 065
     Dates: start: 20180617, end: 20180703
  5. FLUOROURACIL. [Suspect]
     Active Substance: FLUOROURACIL
     Dosage: 0.7 G, QOW; 0.7 G(400 MG/M2)
     Route: 065
     Dates: start: 20171218, end: 20180703
  6. OXALIPLATIN. [Suspect]
     Active Substance: OXALIPLATIN
     Indication: RECTAL ADENOCARCINOMA
     Dosage: 150 MG, QOW; 150 MG(85 MG/M2)
     Route: 065
     Dates: start: 20171218, end: 20180703
  7. CALCIUM FOLINATE [Concomitant]
     Active Substance: LEUCOVORIN CALCIUM
     Indication: RECTAL ADENOCARCINOMA
     Dosage: 0.7 G, QOW (400 MG/M2 )
     Route: 065
     Dates: start: 20171220, end: 20180703
  8. CALCIUM FOLINATE [Concomitant]
     Active Substance: LEUCOVORIN CALCIUM
     Indication: DIFFERENTIATION SYNDROME
  9. FLUOROURACIL. [Suspect]
     Active Substance: FLUOROURACIL
     Dosage: 3.5 G, QOW
     Route: 065
     Dates: start: 20180527
  10. BEVACIZUMAB. [Concomitant]
     Active Substance: BEVACIZUMAB
     Indication: DIFFERENTIATION SYNDROME
  11. OXALIPLATIN. [Suspect]
     Active Substance: OXALIPLATIN
     Indication: DIFFERENTIATION SYNDROME

REACTIONS (6)
  - Nausea [Recovered/Resolved]
  - Confusional state [Recovered/Resolved]
  - Vomiting [Recovered/Resolved]
  - Unresponsive to stimuli [Recovered/Resolved]
  - Ammonia increased [Recovered/Resolved]
  - Vomiting [Recovered/Resolved]

NARRATIVE: CASE EVENT DATE: 20171222
